FAERS Safety Report 4310405-5 (Version None)
Quarter: 2004Q1

REPORT INFORMATION
  Report Type: 
  Country: None (occurrence: None)
  Receive Date: 20040303
  Receipt Date: 20040131
  Transmission Date: 20041129
  Serious: Yes (Hospitalization, Other)
  Sender: FDA-Public Use
  Company Number: PHFR2004GB00857

PATIENT
  Age: 30 Year
  Sex: Female

DRUGS (5)
  1. CLOZARIL [Suspect]
     Indication: SCHIZOPHRENIA
     Route: 048
     Dates: start: 19980101
  2. CLOZARIL [Suspect]
     Dosage: 250MG
     Dates: start: 20040130
  3. CLOZARIL [Suspect]
     Dosage: 250 MG, BID
     Route: 048
  4. PAROXETINE HCL [Concomitant]
     Dosage: 30 MG/DAY
     Route: 048
     Dates: start: 19980101, end: 20030825
  5. BENZHEXOL [Concomitant]
     Dosage: 1 MG, BID

REACTIONS (4)
  - DIZZINESS [None]
  - HYPOTENSION [None]
  - MEDICATION ERROR [None]
  - ORTHOSTATIC HYPOTENSION [None]
